FAERS Safety Report 8018152-3 (Version None)
Quarter: 2012Q1

REPORT INFORMATION
  Report Type: 
  Country: None (occurrence: None)
  Receive Date: 20120103
  Receipt Date: 20111229
  Transmission Date: 20120608
  Serious: Yes (Other)
  Sender: FDA-Public Use
  Company Number: IT-JNJFOC-20111107289

PATIENT
  Sex: Male

DRUGS (2)
  1. KETOPROFEN [Suspect]
     Indication: BACTERIAL INFECTION
     Route: 048
     Dates: start: 20111011, end: 20111012
  2. LEVOFLOXACIN [Suspect]
     Indication: BACTERIAL INFECTION
     Route: 048
     Dates: start: 20111012, end: 20111012

REACTIONS (10)
  - OROPHARYNGEAL PAIN [None]
  - APHONIA [None]
  - CYANOSIS [None]
  - CONVULSION [None]
  - ABDOMINAL PAIN UPPER [None]
  - DYSPNOEA [None]
  - COUGH [None]
  - APNOEA [None]
  - TOTAL LUNG CAPACITY DECREASED [None]
  - PRURITUS [None]
